FAERS Safety Report 9617517 (Version 2)
Quarter: 2013Q4

REPORT INFORMATION
  Report Type: Report from Study
  Country: FR (occurrence: FR)
  Receive Date: 20131011
  Receipt Date: 20131011
  Transmission Date: 20140711
  Serious: Yes (Other)
  Sender: FDA-Public Use
  Company Number: FR-GLAXOSMITHKLINE-B0710495A

PATIENT
  Age: 39 Year
  Sex: Female
  Weight: 59 kg

DRUGS (3)
  1. LAPATINIB [Suspect]
     Indication: BREAST CANCER
     Dosage: 17500MG CUMULATIVE DOSE
     Route: 048
     Dates: start: 20110210
  2. TAXOTERE [Suspect]
     Indication: BREAST CANCER
     Dosage: 129MG CUMULATIVE DOSE
     Route: 042
     Dates: start: 20110210
  3. PROCTOLOG [Concomitant]
     Indication: HAEMORRHOIDS
     Dates: start: 20110227

REACTIONS (1)
  - Neutropenia [Recovered/Resolved]
